FAERS Safety Report 6706809-3 (Version None)
Quarter: 2010Q2

REPORT INFORMATION
  Report Type: 
  Country: None (occurrence: None)
  Receive Date: 20100503
  Receipt Date: 20100426
  Transmission Date: 20101027
  Serious: Yes (Hospitalization)
  Sender: FDA-Public Use
  Company Number: FR-ASTRAZENECA-2010SE19083

PATIENT
  Age: 81 Year
  Sex: Female

DRUGS (10)
  1. TENORETIC 100 [Suspect]
     Dosage: 50/12.5 MG, 1 TABLET DAILY
     Route: 048
  2. LOGIMAX [Interacting]
     Dosage: 5/47.5 MG, ONE TABLET DAILY
     Route: 048
  3. INIPOMP [Interacting]
     Route: 048
  4. CRESTOR [Concomitant]
  5. STRUCTUM [Concomitant]
  6. IRBESARTAN [Concomitant]
     Route: 048
  7. BETASERC [Concomitant]
  8. CALTRATE [Concomitant]
  9. BONIVA [Concomitant]
  10. KARDEGIC [Concomitant]

REACTIONS (3)
  - DRUG INTERACTION [None]
  - HYPOKALAEMIA [None]
  - HYPONATRAEMIA [None]
